FAERS Safety Report 5374048-7 (Version None)
Quarter: 2007Q2

REPORT INFORMATION
  Report Type: 
  Country: None (occurrence: None)
  Receive Date: 20070627
  Receipt Date: 20070613
  Transmission Date: 20071010
  Serious: Yes (Hospitalization)
  Sender: FDA-Public Use
  Company Number: 07H-163-0312735-00

PATIENT
  Age: 3 Year
  Sex: Female
  Weight: 18 kg

DRUGS (2)
  1. CLINDAMYCIN PHOSPHATE [Suspect]
     Indication: LUNG ABSCESS
     Dosage: 6 ML, ONCE, SINGLE LUMEN PICC
     Dates: start: 20070612, end: 20070612
  2. SODIUM CHLORIDE 0.9% [Concomitant]

REACTIONS (2)
  - ANAPHYLACTIC REACTION [None]
  - LATEX ALLERGY [None]
